FAERS Safety Report 5320741-1 (Version None)
Quarter: 2007Q2

REPORT INFORMATION
  Report Type: 
  Country: None (occurrence: None)
  Receive Date: 20070509
  Receipt Date: 20070502
  Transmission Date: 20071010
  Serious: Yes (Other)
  Sender: FDA-Public Use
  Company Number: US-SHR-US-2007-009632

PATIENT
  Age: 28 Year
  Sex: Female
  Weight: 81.6 kg

DRUGS (9)
  1. YASMIN [Suspect]
     Indication: ORAL CONTRACEPTION
     Dosage: 1 TAB(S), 1X/DAY
     Route: 048
     Dates: start: 20010101, end: 20070303
  2. BENADRYL ^WARNER-LAMBERT^               /USA/ [Suspect]
  3. CLARINEX                                /USA/ [Suspect]
  4. ALLEGRA [Suspect]
  5. HYDROXYZINE [Suspect]
  6. ZANTAC [Suspect]
  7. SINGULAIR [Suspect]
     Dosage: UNK, 1X/DAY
     Route: 048
     Dates: start: 20070212
  8. DAYPRO [Concomitant]
     Indication: BACK PAIN
     Route: 048
     Dates: start: 20050901, end: 20060401
  9. NAPROXEN [Concomitant]
     Indication: PAIN
     Dosage: UNK, AS REQ'D
     Route: 048

REACTIONS (8)
  - ANTICHOLINERGIC SYNDROME [None]
  - DRUG TOXICITY [None]
  - FACIAL PAIN [None]
  - PANIC ATTACK [None]
  - THYROXINE INCREASED [None]
  - TRI-IODOTHYRONINE INCREASED [None]
  - URTICARIA GENERALISED [None]
  - VISION BLURRED [None]
